FAERS Safety Report 4666032-3 (Version None)
Quarter: 2005Q2

REPORT INFORMATION
  Report Type: 
  Country: None (occurrence: None)
  Receive Date: 20050517
  Receipt Date: 20050517
  Transmission Date: 20051028
  Serious: Yes (Other)
  Sender: FDA-Public Use
  Company Number: None

PATIENT
  Sex: Male
  Weight: 70.7611 kg

DRUGS (1)
  1. LUNESTA [Suspect]
     Indication: SOMNOLENCE
     Dosage: NIGHTLY
     Dates: start: 20050501, end: 20050510

REACTIONS (1)
  - DRUG INEFFECTIVE [None]
